FAERS Safety Report 8848776 (Version 2)
Quarter: 2014Q1

REPORT INFORMATION
  Report Type: Spontaneous
  Country: US (occurrence: US)
  Receive Date: 20121018
  Receipt Date: 20140127
  Transmission Date: 20141002
  Serious: Yes (Other)
  Sender: FDA-Public Use
  Company Number: US-BAYER-2012-106272

PATIENT
  Age: 32 Year
  Sex: Female

DRUGS (8)
  1. YASMIN [Suspect]
     Dosage: UNK
     Dates: start: 200205
  2. YAZ [Suspect]
     Dosage: UNK
  3. NEXIUM [Concomitant]
     Dosage: 40 MG, BID
     Dates: start: 20021001
  4. REGLAN [Concomitant]
     Dosage: 10 MG, 30 MIN BEFORE MEALS FOUR TIMES A DAY
     Route: 048
     Dates: start: 20021001
  5. ZOLOFT [Concomitant]
     Dosage: 50 MG, 1 EVERY MORNING
     Route: 048
     Dates: start: 20021001
  6. LOTREL [Concomitant]
     Dosage: 5/10 1 EVERY DAY
     Route: 048
     Dates: start: 20021001
  7. SYNTHROID [Concomitant]
     Dosage: 0.05 MG, 1 EVERY MORNING
     Route: 048
     Dates: start: 20021001
  8. WELLBUTRIN SR [Concomitant]
     Dosage: 150 MG, Q 11A + 5 PM
     Route: 048
     Dates: start: 20021001

REACTIONS (8)
  - Gallbladder injury [None]
  - Cholecystitis chronic [None]
  - Pain [None]
  - Injury [None]
  - General physical health deterioration [None]
  - Emotional distress [None]
  - Anxiety [None]
  - Pain [None]
